FAERS Safety Report 12334648 (Version 1)
Quarter: 2016Q2

REPORT INFORMATION
  Report Type: Spontaneous
  Country: US (occurrence: US)
  Receive Date: 20160504
  Receipt Date: 20160504
  Transmission Date: 20160815
  Serious: Yes (Death)
  Sender: FDA-Public Use
  Company Number: US-BAYER-2016-085945

PATIENT
  Age: 102 Year
  Sex: Female
  Weight: 63.49 kg

DRUGS (1)
  1. BAYER GENUINE ASPIRIN [Suspect]
     Active Substance: ASPIRIN
     Dosage: 2 DF, QD
     Route: 048

REACTIONS (2)
  - Death [Fatal]
  - Product use issue [None]
